FAERS Safety Report 15899643 (Version 2)
Quarter: 2019Q1

REPORT INFORMATION
  Report Type: Spontaneous
  Country: US (occurrence: US)
  Receive Date: 20190201
  Receipt Date: 20190322
  Transmission Date: 20190417
  Serious: No
  Sender: FDA-Public Use
  Company Number: US-ASTRAZENECA-2019SE01273

PATIENT
  Sex: Female
  Weight: 90.7 kg

DRUGS (2)
  1. LISINOPRIL. [Suspect]
     Active Substance: LISINOPRIL
     Indication: HYPERTENSION
     Route: 048
     Dates: start: 2003
  2. SYMBICORT [Suspect]
     Active Substance: BUDESONIDE\FORMOTEROL FUMARATE DIHYDRATE
     Indication: RESTRICTIVE PULMONARY DISEASE
     Dosage: 80/4.5 MCG, TWO INHALATIONS TWO TIMES A DAY,
     Route: 055
     Dates: start: 2017

REACTIONS (5)
  - Wrong technique in device usage process [Unknown]
  - Restrictive pulmonary disease [Unknown]
  - Off label use [Unknown]
  - Product use in unapproved indication [Unknown]
  - Device issue [Unknown]
